FAERS Safety Report 25199214 (Version 1)
Quarter: 2025Q2

REPORT INFORMATION
  Report Type: Spontaneous
  Country: GB (occurrence: GB)
  Receive Date: 20250415
  Receipt Date: 20250415
  Transmission Date: 20250717
  Serious: Yes (Other)
  Sender: MYLAN
  Company Number: GB-MYLANLABS-2024M1061521

PATIENT
  Age: 44 Year
  Sex: Female

DRUGS (8)
  1. CLOZARIL [Suspect]
     Active Substance: CLOZAPINE
     Indication: Schizophrenia
     Dosage: 375 MILLIGRAM, BID (200MG IN THE MORNING AND 175MG AT NIGHT)
     Dates: start: 20240205
  2. CLOZARIL [Suspect]
     Active Substance: CLOZAPINE
     Dosage: 375 MILLIGRAM, BID (200MG IN THE MORNING AND 175MG AT NIGHT)
     Route: 048
     Dates: start: 20240205
  3. CLOZARIL [Suspect]
     Active Substance: CLOZAPINE
     Dosage: 375 MILLIGRAM, BID (200MG IN THE MORNING AND 175MG AT NIGHT)
     Route: 048
     Dates: start: 20240205
  4. CLOZARIL [Suspect]
     Active Substance: CLOZAPINE
     Dosage: 375 MILLIGRAM, BID (200MG IN THE MORNING AND 175MG AT NIGHT)
     Dates: start: 20240205
  5. LITHIUM [Concomitant]
     Active Substance: LITHIUM
     Dosage: 1.2 GRAM, QD
  6. LITHIUM [Concomitant]
     Active Substance: LITHIUM
     Dosage: 1.2 GRAM, QD
     Route: 065
  7. LITHIUM [Concomitant]
     Active Substance: LITHIUM
     Dosage: 1.2 GRAM, QD
     Route: 065
  8. LITHIUM [Concomitant]
     Active Substance: LITHIUM
     Dosage: 1.2 GRAM, QD

REACTIONS (3)
  - Haemoglobin decreased [Not Recovered/Not Resolved]
  - Antipsychotic drug level decreased [Unknown]
  - Treatment noncompliance [Unknown]

NARRATIVE: CASE EVENT DATE: 20240206
